FAERS Safety Report 11134283 (Version 1)
Quarter: 2015Q2

REPORT INFORMATION
  Report Type: Spontaneous
  Country: FR (occurrence: FR)
  Receive Date: 20150525
  Receipt Date: 20150525
  Transmission Date: 20150821
  Serious: Yes (Hospitalization)
  Sender: FDA-Public Use
  Company Number: FR-ROCHE-1581356

PATIENT
  Age: 76 Year
  Sex: Male

DRUGS (8)
  1. ENDOXAN [Concomitant]
     Active Substance: CYCLOPHOSPHAMIDE
     Indication: CHRONIC LYMPHOCYTIC LEUKAEMIA
     Route: 048
     Dates: start: 20150205, end: 20150306
  2. VESICARE [Concomitant]
     Active Substance: SOLIFENACIN SUCCINATE
  3. FENOFIBRATE. [Concomitant]
     Active Substance: FENOFIBRATE
  4. MABTHERA [Suspect]
     Active Substance: RITUXIMAB
     Dosage: ON D1
     Route: 042
     Dates: start: 20150304
  5. MABTHERA [Suspect]
     Active Substance: RITUXIMAB
     Indication: CHRONIC LYMPHOCYTIC LEUKAEMIA
     Dosage: AT D1 AND D2: MABTHERA IV 93 MG OVER 4 HOURS.
     Route: 042
     Dates: start: 20150204
  6. FLUDARABINE [Suspect]
     Active Substance: FLUDARABINE PHOSPHATE
     Indication: CHRONIC LYMPHOCYTIC LEUKAEMIA
     Route: 048
     Dates: start: 20150205, end: 20150306
  7. PLAVIX [Concomitant]
     Active Substance: CLOPIDOGREL BISULFATE
  8. BISOPROLOL [Concomitant]
     Active Substance: BISOPROLOL

REACTIONS (2)
  - Eosinophil count increased [Not Recovered/Not Resolved]
  - Alveolitis [Recovering/Resolving]

NARRATIVE: CASE EVENT DATE: 20150401
